FAERS Safety Report 10069765 (Version 1)
Quarter: 2014Q2

REPORT INFORMATION
  Report Type: Spontaneous
  Country: US (occurrence: US)
  Receive Date: 20140410
  Receipt Date: 20140410
  Transmission Date: 20141212
  Serious: No
  Sender: FDA-Public Use
  Company Number: US-PFIZER INC-2014096953

PATIENT
  Age: 68 Year
  Sex: Male

DRUGS (1)
  1. REVATIO [Suspect]
     Indication: BLOOD PRESSURE ABNORMAL
     Dosage: 40 MG, 3X/DAY
     Route: 048
     Dates: start: 201308, end: 20140331

REACTIONS (2)
  - Lethargy [Unknown]
  - Malaise [Unknown]
